FAERS Safety Report 9742570 (Version 1)
Quarter: 2013Q4

REPORT INFORMATION
  Report Type: Spontaneous
  Country: US (occurrence: US)
  Receive Date: 20131210
  Receipt Date: 20131210
  Transmission Date: 20140711
  Serious: No
  Sender: FDA-Public Use
  Company Number: US-GILEAD-2009-0024279

PATIENT
  Sex: Male
  Weight: 89.36 kg

DRUGS (11)
  1. LETAIRIS [Suspect]
     Indication: PULMONARY ARTERIAL HYPERTENSION
     Route: 048
     Dates: start: 20090831
  2. FUROSEMIDE [Concomitant]
  3. ALLOPURINOL [Concomitant]
  4. OS-CAL 250+D [Concomitant]
  5. PANTOPRAZOLE [Concomitant]
  6. DIGOXIN [Concomitant]
  7. THEOPHYLLINE [Concomitant]
  8. POTASSIUM CHLORIDE [Concomitant]
  9. WARFARIN [Concomitant]
  10. OXYGEN [Concomitant]
  11. DILTIAZEM [Concomitant]

REACTIONS (1)
  - Local swelling [Unknown]
